FAERS Safety Report 8250055-1 (Version None)
Quarter: 2012Q2

REPORT INFORMATION
  Report Type: 
  Country: None (occurrence: None)
  Receive Date: 20120402
  Receipt Date: 20120326
  Transmission Date: 20120825
  Serious: Yes (Other)
  Sender: FDA-Public Use
  Company Number: ES-ASTRAZENECA-2012SE19538

PATIENT
  Age: 58 Year
  Sex: Female
  Weight: 64 kg

DRUGS (1)
  1. VIMOVO [Suspect]
     Indication: ARTHRALGIA
     Route: 048
     Dates: start: 20120210, end: 20120211

REACTIONS (3)
  - DRUG HYPERSENSITIVITY [None]
  - ECZEMA NUMMULAR [None]
  - LIP OEDEMA [None]
